FAERS Safety Report 22109363 (Version 1)
Quarter: 2023Q1

REPORT INFORMATION
  Report Type: Spontaneous
  Country: US (occurrence: US)
  Receive Date: 20230317
  Receipt Date: 20230317
  Transmission Date: 20230417
  Serious: Yes (Other)
  Sender: FDA-Public Use
  Company Number: US-BRISTOL-MYERS SQUIBB COMPANY-2023-036132

PATIENT
  Age: 76 Year
  Sex: Female
  Weight: 70.31 kg

DRUGS (7)
  1. POMALYST [Suspect]
     Active Substance: POMALIDOMIDE
     Indication: Plasma cell myeloma
     Dosage: FREQUENCY: 3W, 1W OFF
     Route: 048
  2. DARATUMUMAB [Concomitant]
     Active Substance: DARATUMUMAB
     Indication: Product used for unknown indication
  3. DARATUMUMAB [Concomitant]
     Active Substance: DARATUMUMAB
     Dates: start: 20230210
  4. DARATUMUMAB [Concomitant]
     Active Substance: DARATUMUMAB
     Dates: start: 20230224
  5. VELCADE [Concomitant]
     Active Substance: BORTEZOMIB
     Indication: Product used for unknown indication
  6. VELCADE [Concomitant]
     Active Substance: BORTEZOMIB
     Dates: start: 20230210
  7. VELCADE [Concomitant]
     Active Substance: BORTEZOMIB
     Dates: start: 20230224

REACTIONS (3)
  - Plasma cell myeloma [Unknown]
  - Acute kidney injury [Recovered/Resolved]
  - Treatment noncompliance [Unknown]
